FAERS Safety Report 6175317-3 (Version None)
Quarter: 2009Q2

REPORT INFORMATION
  Report Type: 
  Country: None (occurrence: None)
  Receive Date: 20090429
  Receipt Date: 20090415
  Transmission Date: 20091009
  Serious: Yes (Hospitalization)
  Sender: FDA-Public Use
  Company Number: 20090506

PATIENT
  Sex: Male
  Weight: 65 kg

DRUGS (10)
  1. OMEPRAZOLE [Suspect]
     Indication: GASTROOESOPHAGEAL REFLUX DISEASE
     Dosage: 20 MG ONCE A DAY, ORAL
     Route: 048
     Dates: start: 20080316
  2. DILTIAZAM [Concomitant]
  3. BUMETANIDE [Concomitant]
  4. UROXATRAL [Concomitant]
  5. LOVASTATIN [Concomitant]
  6. LYRICA [Concomitant]
  7. ADENDRONATE [Concomitant]
  8. PREDNISONE [Concomitant]
  9. LUTRON (EXPERIMENTAL DRUG) [Concomitant]
  10. JANUVIA [Concomitant]

REACTIONS (1)
  - ANAEMIA [None]
